FAERS Safety Report 12554346 (Version 1)
Quarter: 2016Q3

REPORT INFORMATION
  Report Type: Spontaneous
  Country: US (occurrence: US)
  Receive Date: 20160713
  Receipt Date: 20160713
  Transmission Date: 20161109
  Serious: No
  Sender: FDA-Public Use
  Company Number: US-ROCHE-1741062

PATIENT
  Age: 67 Year
  Sex: Female

DRUGS (3)
  1. TAXOTERE [Concomitant]
     Active Substance: DOCETAXEL
     Indication: HER-2 POSITIVE BREAST CANCER
     Dosage: 6 CYCLES, ONCE EVERY 3 WEEKS, HAVE BEEN GIVEN.
     Route: 042
  2. PERJETA [Suspect]
     Active Substance: PERTUZUMAB
     Indication: HER-2 POSITIVE BREAST CANCER
     Dosage: 6 CYCLES, ONCE EVERY 3 WEEKS, HAVE BEEN GIVEN.
     Route: 042
  3. HERCEPTIN [Suspect]
     Active Substance: TRASTUZUMAB
     Indication: HER-2 POSITIVE BREAST CANCER
     Dosage: 6 CYCLES, ONCE EVERY 3 WEEKS, HAVE BEEN GIVEN.
     Route: 042

REACTIONS (1)
  - Lacrimation increased [Unknown]
